FAERS Safety Report 5373847-5 (Version None)
Quarter: 2007Q2

REPORT INFORMATION
  Report Type: 
  Country: None (occurrence: None)
  Receive Date: 20070628
  Receipt Date: 20070621
  Transmission Date: 20071010
  Serious: Yes (Other)
  Sender: FDA-Public Use
  Company Number: US-PFIZER INC-2007045143

PATIENT
  Sex: Female
  Weight: 63.5 kg

DRUGS (2)
  1. LYRICA [Suspect]
     Indication: NEURALGIA
     Dates: start: 20060301, end: 20070401
  2. CORTICOSTEROIDS [Concomitant]
     Indication: AUTOIMMUNE DISORDER

REACTIONS (9)
  - ABDOMINAL DISTENSION [None]
  - AMENORRHOEA [None]
  - BLOOD COPPER DECREASED [None]
  - BLOOD SODIUM INCREASED [None]
  - BLOOD ZINC DECREASED [None]
  - COORDINATION ABNORMAL [None]
  - FLATULENCE [None]
  - GASTROINTESTINAL MOTILITY DISORDER [None]
  - WEIGHT INCREASED [None]
